FAERS Safety Report 21999604 (Version 1)
Quarter: 2023Q1

REPORT INFORMATION
  Report Type: Report from Study
  Country: US (occurrence: US)
  Receive Date: 20230216
  Receipt Date: 20230216
  Transmission Date: 20230418
  Serious: Yes (Hospitalization)
  Sender: FDA-Public Use
  Company Number: US-ELI_LILLY_AND_COMPANY-US202302004024

PATIENT
  Sex: Female

DRUGS (2)
  1. TRULICITY [Suspect]
     Active Substance: DULAGLUTIDE
     Indication: Product used for unknown indication
     Dosage: 0.75 MG, UNKNOWN
     Route: 065
     Dates: start: 20210521
  2. TRULICITY [Suspect]
     Active Substance: DULAGLUTIDE
     Dosage: 1.75 MG, UNKNOWN
     Route: 065
     Dates: start: 20220504

REACTIONS (1)
  - Blood glucose decreased [Unknown]
